FAERS Safety Report 8449135-7 (Version None)
Quarter: 2012Q2

REPORT INFORMATION
  Report Type: 
  Country: None (occurrence: None)
  Receive Date: 20120619
  Receipt Date: 20120605
  Transmission Date: 20120825
  Serious: No
  Sender: FDA-Public Use
  Company Number: US-B.I. PHARMACEUTICALS,INC./RIDGEFIELD-2012-BP-13046BP

PATIENT
  Sex: Female

DRUGS (5)
  1. METOPROLOL SUCCINATE [Concomitant]
     Indication: HEART RATE
     Dosage: 50 MG
     Route: 048
     Dates: start: 20110101
  2. PRADAXA [Suspect]
     Indication: ATRIAL FIBRILLATION
  3. ASPIRIN [Concomitant]
     Indication: THROMBOSIS PROPHYLAXIS
     Route: 048
     Dates: start: 20120521
  4. PRADAXA [Suspect]
     Indication: THROMBOSIS PROPHYLAXIS
     Route: 048
     Dates: start: 20120522
  5. PROPAFENONE HYDROCHLORIDE [Concomitant]
     Indication: ARRHYTHMIA PROPHYLAXIS
     Dosage: 650 MG
     Route: 048

REACTIONS (1)
  - HEADACHE [None]
